FAERS Safety Report 9581017 (Version 1)
Quarter: 2013Q4

REPORT INFORMATION
  Report Type: Spontaneous
  Country: US (occurrence: None)
  Receive Date: 20131001
  Receipt Date: 20131001
  Transmission Date: 20140711
  Serious: No
  Sender: FDA-Public Use
  Company Number: None

PATIENT
  Age: 48 Year
  Sex: Female
  Weight: 61.69 kg

DRUGS (6)
  1. LEVOFLOXACIN [Suspect]
     Indication: EAR INFECTION
     Dosage: 500 MG, 1 TABLET , EVERY DAY, MOUTH
     Route: 048
     Dates: start: 20130214, end: 20130219
  2. LEVOFLOXACIN [Suspect]
     Indication: PHARYNGITIS
     Dosage: 500 MG, 1 TABLET , EVERY DAY, MOUTH
     Route: 048
     Dates: start: 20130214, end: 20130219
  3. WELBUTRIN [Concomitant]
  4. XANAX [Concomitant]
  5. OMEGA 3 [Concomitant]
  6. CENTRUM [Concomitant]

REACTIONS (14)
  - Pain [None]
  - Local swelling [None]
  - Arthralgia [None]
  - Joint crepitation [None]
  - Hypoaesthesia [None]
  - Paraesthesia [None]
  - Feeling abnormal [None]
  - Osteoarthritis [None]
  - Memory impairment [None]
  - Mood altered [None]
  - Impaired work ability [None]
  - Disturbance in attention [None]
  - Confusional state [None]
  - Economic problem [None]
